FAERS Safety Report 8767388 (Version 4)
Quarter: 2013Q3

REPORT INFORMATION
  Report Type: Report from Study
  Country: JP (occurrence: JP)
  Receive Date: 20120904
  Receipt Date: 20130712
  Transmission Date: 20140515
  Serious: Yes (Other)
  Sender: FDA-Public Use
  Company Number: JP-VERTEX PHARMACEUTICAL INC.-2012-020281

PATIENT
  Age: 57 Year
  Sex: Male

DRUGS (7)
  1. VX-950 (TELAPREVIR) [Suspect]
     Indication: CHRONIC HEPATITIS C
     Dosage: 1500 MG, QD
     Route: 048
     Dates: start: 20120621, end: 20120718
  2. VX-950 (TELAPREVIR) [Suspect]
     Dosage: 1500, MG, QD
     Route: 048
     Dates: start: 20120726, end: 20120808
  3. VX-950 (TELAPREVIR) [Suspect]
     Dosage: 1500, MG, QD
     Route: 048
     Dates: start: 20120823, end: 20120913
  4. REBETOL [Suspect]
     Indication: CHRONIC HEPATITIS C
     Dosage: 600 MG, QD
     Route: 048
     Dates: start: 20120621, end: 20120720
  5. REBETOL [Suspect]
     Dosage: 200 MG, QD
     Route: 048
     Dates: start: 20120823
  6. PEGINTRON [Suspect]
     Indication: CHRONIC HEPATITIS C
     Dosage: 1.5 ?G/KG, WEEKLY
     Route: 058
     Dates: start: 20120621
  7. MICARDIS [Concomitant]
     Dosage: 20 MG, QD
     Route: 048

REACTIONS (1)
  - Renal failure acute [Recovered/Resolved]
